FAERS Safety Report 6076108-4 (Version None)
Quarter: 2009Q1

REPORT INFORMATION
  Report Type: 
  Country: None (occurrence: None)
  Receive Date: 20090212
  Receipt Date: 20090204
  Transmission Date: 20090719
  Serious: Yes (Other)
  Sender: FDA-Public Use
  Company Number: US-WYE-H08077309

PATIENT
  Sex: Female
  Weight: 77.18 kg

DRUGS (3)
  1. PRISTIQ [Suspect]
     Indication: DEPRESSION
     Route: 048
     Dates: start: 20090101
  2. PROTONIX [Concomitant]
     Dosage: UNKNOWN
     Route: 048
     Dates: start: 20090131
  3. PENTASA [Concomitant]
     Dosage: UNKNOWN
     Dates: start: 20081101

REACTIONS (3)
  - DYSPHAGIA [None]
  - DYSPNOEA [None]
  - SENSATION OF FOREIGN BODY [None]
